FAERS Safety Report 22278535 (Version 1)
Quarter: 2023Q2

REPORT INFORMATION
  Report Type: Spontaneous
  Country: TH (occurrence: TH)
  Receive Date: 20230503
  Receipt Date: 20230503
  Transmission Date: 20230721
  Serious: Yes (Death, Hospitalization, Other)
  Sender: FDA-Public Use
  Company Number: TH-STERISCIENCE B.V.-2023-ST-001231

PATIENT
  Age: 80 Year
  Sex: Male

DRUGS (1)
  1. BUPIVACAINE [Suspect]
     Active Substance: BUPIVACAINE
     Indication: Spinal anaesthesia
     Dosage: 15 MILLIGRAM
     Route: 065

REACTIONS (1)
  - Cardiac arrest [Fatal]
